FAERS Safety Report 11759617 (Version 1)
Quarter: 2015Q4

REPORT INFORMATION
  Report Type: Spontaneous
  Country: US (occurrence: None)
  Receive Date: 20151119
  Receipt Date: 20151119
  Transmission Date: 20160304
  Serious: Yes (Life-Threatening, Disabling, Other)
  Sender: FDA-Public Use
  Company Number: None

PATIENT
  Age: 26 Year
  Sex: Female
  Weight: 61.24 kg

DRUGS (6)
  1. CLONAZEPAM. [Concomitant]
     Active Substance: CLONAZEPAM
  2. TYLENOL [Concomitant]
     Active Substance: ACETAMINOPHEN
  3. ZANTAC [Concomitant]
     Active Substance: RANITIDINE HYDROCHLORIDE
  4. MIRALAX [Concomitant]
     Active Substance: POLYETHYLENE GLYCOL 3350
  5. PAXIL [Suspect]
     Active Substance: PAROXETINE HYDROCHLORIDE
     Indication: PANIC DISORDER
     Dosage: 1 PILL
     Route: 048
     Dates: start: 200208, end: 201006
  6. PAXIL [Suspect]
     Active Substance: PAROXETINE HYDROCHLORIDE
     Indication: GENERALISED ANXIETY DISORDER
     Dosage: 1 PILL
     Route: 048
     Dates: start: 200208, end: 201006

REACTIONS (17)
  - Derealisation [None]
  - Insomnia [None]
  - Diarrhoea [None]
  - Substance abuse [None]
  - Sexually inappropriate behaviour [None]
  - Drug withdrawal syndrome [None]
  - Emotional disorder [None]
  - Weight decreased [None]
  - Drug dependence [None]
  - Alcohol use [None]
  - Mood altered [None]
  - Panic attack [None]
  - Depression [None]
  - Suicidal ideation [None]
  - Paraesthesia [None]
  - Irritability [None]
  - Anxiety [None]

NARRATIVE: CASE EVENT DATE: 20091124
